FAERS Safety Report 14963544 (Version 1)
Quarter: 2018Q2

REPORT INFORMATION
  Report Type: Report from Study
  Country: JP (occurrence: JP)
  Receive Date: 20180601
  Receipt Date: 20180601
  Transmission Date: 20180711
  Serious: Yes (Life-Threatening)
  Sender: FDA-Public Use
  Company Number: JP-PFIZER INC-2018221662

PATIENT
  Age: 33 Year
  Sex: Female

DRUGS (7)
  1. EURODIN /00401202/ [Concomitant]
     Active Substance: DIHYDROERGOCRISTINE MESYLATE
     Dosage: 1 MG, DAILY
     Route: 048
     Dates: end: 20170630
  2. LUNESTA [Concomitant]
     Active Substance: ESZOPICLONE
     Dosage: 2 MG, DAILY
     Route: 048
     Dates: end: 20170630
  3. REFLEX [Concomitant]
     Active Substance: MIRTAZAPINE
     Dosage: 7.5 MG, DAILY
     Route: 048
     Dates: start: 20170202, end: 20170630
  4. EFFEXOR [Suspect]
     Active Substance: VENLAFAXINE HYDROCHLORIDE
     Dosage: 150 MG, 1X/DAY
     Route: 048
     Dates: start: 20170630, end: 20170706
  5. EFFEXOR [Suspect]
     Active Substance: VENLAFAXINE HYDROCHLORIDE
     Dosage: 225 MG, 1X/DAY
     Route: 048
     Dates: start: 20170113, end: 20170529
  6. ABILIFY [Concomitant]
     Active Substance: ARIPIPRAZOLE
     Dosage: 1 MG, DAILY
     Route: 048
     Dates: end: 20170201
  7. SENIRAN [Concomitant]
     Active Substance: BROMAZEPAM
     Dosage: 6 MG, DAILY
     Route: 048
     Dates: start: 20170113, end: 20170630

REACTIONS (1)
  - Suicide attempt [Recovering/Resolving]

NARRATIVE: CASE EVENT DATE: 20170706
